FAERS Safety Report 5772086-3 (Version None)
Quarter: 2008Q2

REPORT INFORMATION
  Report Type: 
  Country: None (occurrence: None)
  Receive Date: 20080612
  Receipt Date: 20080612
  Transmission Date: 20081010
  Serious: Yes (Hospitalization)
  Sender: FDA-Public Use
  Company Number: None

PATIENT
  Sex: Female
  Weight: 61.9 kg

DRUGS (3)
  1. CYTARABINE [Suspect]
     Dosage: 13190 MG
  2. MYLOTARG [Suspect]
     Dosage: 5 MG
  3. MITOXANTRONE HYDROCHLORIDE [Suspect]
     Dosage: 80 MG

REACTIONS (6)
  - BONE MARROW FAILURE [None]
  - DIASTOLIC DYSFUNCTION [None]
  - ELECTROCARDIOGRAM QT PROLONGED [None]
  - FEBRILE NEUTROPENIA [None]
  - SEPTIC SHOCK [None]
  - STREPTOCOCCAL SEPSIS [None]
